FAERS Safety Report 15411312 (Version 3)
Quarter: 2018Q4

REPORT INFORMATION
  Report Type: Spontaneous
  Country: US (occurrence: US)
  Receive Date: 20180921
  Receipt Date: 20181112
  Transmission Date: 20190204
  Serious: No
  Sender: FDA-Public Use
  Company Number: US-PFIZER INC-2018020070

PATIENT
  Age: 42 Year
  Sex: Male
  Weight: 92 kg

DRUGS (5)
  1. LYRICA [Suspect]
     Active Substance: PREGABALIN
     Indication: BACK PAIN
  2. LYRICA [Suspect]
     Active Substance: PREGABALIN
     Indication: PAIN
  3. LYRICA [Suspect]
     Active Substance: PREGABALIN
     Indication: NEURALGIA
     Dosage: 75 MG, UNK
  4. LYRICA [Suspect]
     Active Substance: PREGABALIN
     Indication: NEURITIS
     Dosage: 150 MG, 2X/DAY (2 CAPSULE 2 TIMES A DAY)
     Route: 048
     Dates: start: 20180119, end: 20180704
  5. LYRICA [Suspect]
     Active Substance: PREGABALIN
     Indication: PHANTOM PAIN

REACTIONS (1)
  - No adverse event [Unknown]
